FAERS Safety Report 7386721-X (Version None)
Quarter: 2011Q1

REPORT INFORMATION
  Report Type: 
  Country: None (occurrence: None)
  Receive Date: 20110331
  Receipt Date: 20110327
  Transmission Date: 20110831
  Serious: No
  Sender: FDA-Public Use
  Company Number: US-TEVA-273789USA

PATIENT
  Sex: Female
  Weight: 48.124 kg

DRUGS (3)
  1. PLAN B ONE-STEP [Suspect]
     Indication: POST COITAL CONTRACEPTION
     Route: 048
     Dates: start: 20110321, end: 20110321
  2. CITALOPRAM HYDROBROMIDE [Concomitant]
     Indication: ANXIETY
     Dates: start: 20100701
  3. TRAZODONE [Concomitant]
     Indication: ANXIETY
     Dates: start: 20100701

REACTIONS (1)
  - MENSTRUATION IRREGULAR [None]
